FAERS Safety Report 4766294-8 (Version None)
Quarter: 2005Q3

REPORT INFORMATION
  Report Type: 
  Country: None (occurrence: None)
  Receive Date: 20050912
  Receipt Date: 20050617
  Transmission Date: 20060218
  Serious: Yes (Death, Hospitalization)
  Sender: FDA-Public Use
  Company Number: US-MERCK-0506USA02956

PATIENT
  Age: 82 Year
  Sex: Male
  Weight: 80 kg

DRUGS (15)
  1. VIOXX [Suspect]
     Indication: ARTHRITIS
     Route: 048
     Dates: start: 19990501, end: 20030624
  2. VIOXX [Suspect]
     Route: 048
     Dates: start: 19990501, end: 20030624
  3. COUMADIN [Concomitant]
     Indication: MYOCARDIAL INFARCTION
     Route: 065
     Dates: end: 20030624
  4. NAPROXEN [Concomitant]
     Route: 065
     Dates: start: 19990501, end: 20030524
  5. NEURONTIN [Concomitant]
     Route: 065
  6. LASIX [Concomitant]
     Indication: HYPERTENSION
     Route: 065
     Dates: end: 20030624
  7. LASIX [Concomitant]
     Indication: OEDEMA PERIPHERAL
     Route: 065
     Dates: end: 20030624
  8. ALDACTAZIDE [Concomitant]
     Indication: HYPERTENSION
     Route: 065
     Dates: end: 20030624
  9. ALDACTAZIDE [Concomitant]
     Indication: OEDEMA PERIPHERAL
     Route: 065
     Dates: end: 20030624
  10. LANOXIN [Concomitant]
     Indication: ARRHYTHMIA
     Route: 065
     Dates: end: 20030624
  11. LIPITOR [Concomitant]
     Route: 065
     Dates: end: 20030624
  12. COZAAR [Concomitant]
     Indication: HYPERTENSION
     Route: 065
     Dates: end: 20030624
  13. COREG [Concomitant]
     Indication: HYPERTENSION
     Route: 065
     Dates: end: 20030624
  14. VIOXX [Suspect]
     Indication: GOUT
     Route: 048
     Dates: start: 19990501, end: 20030624
  15. VIOXX [Suspect]
     Route: 048
     Dates: start: 19990501, end: 20030624

REACTIONS (36)
  - ABDOMINAL HAEMATOMA [None]
  - ANAEMIA [None]
  - ANXIETY [None]
  - AORTIC VALVE SCLEROSIS [None]
  - ASCITES [None]
  - CARDIAC CIRRHOSIS [None]
  - CARDIAC DISORDER [None]
  - CARDIAC FAILURE [None]
  - CARDIAC FAILURE CONGESTIVE [None]
  - CARDIAC PACEMAKER INSERTION [None]
  - CEREBROVASCULAR ACCIDENT [None]
  - CONDITION AGGRAVATED [None]
  - CONVULSION [None]
  - CORONARY ARTERY DISEASE [None]
  - DEPRESSION [None]
  - DIABETES MELLITUS INADEQUATE CONTROL [None]
  - DILATATION ATRIAL [None]
  - DILATATION VENTRICULAR [None]
  - GASTROINTESTINAL HAEMORRHAGE [None]
  - HALLUCINATION [None]
  - HEPATIC CIRRHOSIS [None]
  - HYPOKALAEMIA [None]
  - INTRA-ABDOMINAL HAEMORRHAGE [None]
  - MENTAL STATUS CHANGES [None]
  - MITRAL VALVE INCOMPETENCE [None]
  - MULTI-ORGAN FAILURE [None]
  - PERICARDIAL EFFUSION [None]
  - POST PROCEDURAL COMPLICATION [None]
  - RENAL FAILURE [None]
  - RESPIRATORY FAILURE [None]
  - THERAPEUTIC AGENT TOXICITY [None]
  - TRICUSPID VALVE INCOMPETENCE [None]
  - URINARY TRACT INFECTION [None]
  - VENTRICULAR ARRHYTHMIA [None]
  - VENTRICULAR EXTRASYSTOLES [None]
  - VENTRICULAR TACHYCARDIA [None]
